FAERS Safety Report 7251767-9 (Version None)
Quarter: 2011Q1

REPORT INFORMATION
  Report Type: 
  Country: None (occurrence: None)
  Receive Date: 20110128
  Receipt Date: 20100324
  Transmission Date: 20110831
  Serious: No
  Sender: FDA-Public Use
  Company Number: US-ABBOTT-10P-163-0620576-00

PATIENT
  Sex: Male
  Weight: 89.438 kg

DRUGS (11)
  1. HUMIRA [Suspect]
     Indication: COLITIS ULCERATIVE
     Route: 058
     Dates: start: 20090501
  2. HUMIRA [Suspect]
     Route: 058
     Dates: start: 20091201
  3. PROCARDIA [Concomitant]
     Indication: HYPERTENSION
  4. POTASSIUM [Concomitant]
     Indication: ARTHRALGIA
  5. FISH OIL [Concomitant]
     Indication: PRODUCT USED FOR UNKNOWN INDICATION
  6. HUMIRA [Suspect]
  7. OMEPRAZOLE [Concomitant]
     Indication: BARRETT'S OESOPHAGUS
  8. PROCARDIA [Concomitant]
     Indication: OESOPHAGEAL SPASM
  9. LEXAPRO [Concomitant]
     Indication: OESOPHAGEAL SPASM
  10. FUROSEMIDE [Concomitant]
     Indication: SWELLING
     Dates: start: 20090101
  11. GLUCOSAMINE [Concomitant]
     Indication: PRODUCT USED FOR UNKNOWN INDICATION

REACTIONS (2)
  - DRUG INEFFECTIVE [None]
  - COLITIS ULCERATIVE [None]
